FAERS Safety Report 6007431-7 (Version None)
Quarter: 2008Q4

REPORT INFORMATION
  Report Type: 
  Country: None (occurrence: None)
  Receive Date: 20081217
  Receipt Date: 20080512
  Transmission Date: 20090506
  Serious: No
  Sender: FDA-Public Use
  Company Number: US-ASTRAZENECA-2008UW07840

PATIENT
  Sex: Female
  Weight: 56.8 kg

DRUGS (2)
  1. CRESTOR [Suspect]
     Indication: LOW DENSITY LIPOPROTEIN INCREASED
     Route: 048
  2. SYNTHROID [Concomitant]
     Route: 048
     Dates: start: 20060101

REACTIONS (4)
  - ASTHENIA [None]
  - FATIGUE [None]
  - MYALGIA [None]
  - VISION BLURRED [None]
